FAERS Safety Report 9477172 (Version 1)
Quarter: 2013Q3

REPORT INFORMATION
  Report Type: Not Available
  Country: US (occurrence: US)
  Receive Date: 20130826
  Receipt Date: 20130826
  Transmission Date: 20140515
  Serious: No
  Sender: FDA-Public Use
  Company Number: US-AMARIN PHARMA, INC.-2013AMR000026

PATIENT
  Age: 79 Year
  Sex: Female
  Weight: 74.91 kg

DRUGS (7)
  1. VASCEPA [Suspect]
     Indication: BLOOD CHOLESTEROL INCREASED
     Route: 065
     Dates: start: 20130518
  2. WELCHOL [Concomitant]
     Indication: BLOOD CHOLESTEROL
     Dosage: SIX A DAY
     Route: 065
     Dates: start: 201206
  3. SYNTHROID [Concomitant]
     Indication: THYROID DISORDER
     Route: 065
  4. BYSTOLIC [Concomitant]
     Indication: BLOOD PRESSURE
     Route: 065
  5. ASPIRIN [Concomitant]
     Indication: PRODUCT USED FOR UNKNOWN INDICATION
     Route: 065
  6. PLAVIX [Concomitant]
     Indication: ANTICOAGULANT THERAPY
     Route: 065
     Dates: start: 201206
  7. VITAMIN [Concomitant]
     Indication: PRODUCT USED FOR UNKNOWN INDICATION
     Route: 065

REACTIONS (4)
  - Abdominal distension [None]
  - Decreased appetite [None]
  - Eructation [None]
  - Initial insomnia [Recovered/Resolved]
